FAERS Safety Report 7635622-8 (Version None)
Quarter: 2011Q3

REPORT INFORMATION
  Report Type: 
  Country: None (occurrence: None)
  Receive Date: 20110726
  Receipt Date: 20110722
  Transmission Date: 20111222
  Serious: Yes (Life-Threatening, Hospitalization)
  Sender: FDA-Public Use
  Company Number: ES-SANOFI-AVENTIS-2011SA046227

PATIENT
  Age: 60 Year
  Sex: Male
  Weight: 111 kg

DRUGS (8)
  1. PREDNISONE [Suspect]
     Indication: PROSTATE CANCER
     Route: 048
     Dates: start: 20110307
  2. CABAZITAXEL [Suspect]
     Route: 042
     Dates: start: 20110711, end: 20110711
  3. MORPHINE [Concomitant]
  4. METFORMIN HCL [Concomitant]
  5. CABAZITAXEL [Suspect]
     Indication: PROSTATE CANCER
     Route: 042
     Dates: start: 20110307, end: 20110307
  6. OMEPRAZOLE [Concomitant]
  7. CARDURA [Concomitant]
  8. LOSARTAN POTASSIUM [Concomitant]

REACTIONS (1)
  - RHABDOMYOLYSIS [None]
